FAERS Safety Report 13573634 (Version 2)
Quarter: 2017Q2

REPORT INFORMATION
  Report Type: Spontaneous
  Country: US (occurrence: US)
  Receive Date: 20170523
  Receipt Date: 20170613
  Transmission Date: 20170830
  Serious: Yes (Other)
  Sender: FDA-Public Use
  Company Number: US-SMITH AND NEPHEW, INC-2017SMT00325

PATIENT
  Age: 60 Year
  Sex: Female
  Weight: 91.61 kg

DRUGS (1)
  1. REGRANEX [Suspect]
     Active Substance: BECAPLERMIN
     Indication: DIABETIC ULCER
     Dosage: UNK, 1X/DAY FOR 12 HOURS ON AND 12 HOURS OFF
     Route: 061
     Dates: start: 20170315, end: 20170428

REACTIONS (4)
  - Wound [Unknown]
  - Wound infection staphylococcal [Unknown]
  - Wound dehiscence [Unknown]
  - Wound complication [Unknown]

NARRATIVE: CASE EVENT DATE: 20170428
